FAERS Safety Report 24686255 (Version 1)
Quarter: 2024Q4

REPORT INFORMATION
  Report Type: Spontaneous
  Country: GB (occurrence: None)
  Receive Date: 20241128
  Receipt Date: 20241128
  Transmission Date: 20250115
  Serious: Yes (Hospitalization, Disabling)
  Sender: Public
  Company Number: None

PATIENT
  Age: 34 Year
  Sex: Female
  Weight: 47 kg

DRUGS (1)
  1. ESCITALOPRAM [Suspect]
     Active Substance: ESCITALOPRAM OXALATE
     Indication: Palpitations
     Dates: start: 20240628

REACTIONS (14)
  - Hyperhidrosis [None]
  - Headache [None]
  - Bedridden [None]
  - Emotional distress [None]
  - Muscle twitching [None]
  - Tinnitus [None]
  - Amenorrhoea [None]
  - Loss of personal independence in daily activities [None]
  - Decreased appetite [None]
  - Muscle atrophy [None]
  - Weight decreased [None]
  - Temperature regulation disorder [None]
  - Suicide attempt [None]
  - Drug ineffective [None]

NARRATIVE: CASE EVENT DATE: 20240628
